FAERS Safety Report 6454193-5 (Version None)
Quarter: 2009Q4

REPORT INFORMATION
  Report Type: 
  Country: None (occurrence: None)
  Receive Date: 20091124
  Receipt Date: 20091104
  Transmission Date: 20100525
  Serious: Yes (Hospitalization, Other)
  Sender: FDA-Public Use
  Company Number: US-BAYER-200938509NA

PATIENT
  Age: 40 Year
  Sex: Female

DRUGS (2)
  1. DROSPIRENONE AND ESTRADIOL [Suspect]
     Indication: CONTRACEPTION
     Route: 048
     Dates: start: 20080701, end: 20081101
  2. YASMIN [Suspect]
     Indication: DRUG USE FOR UNKNOWN INDICATION
     Dates: start: 20080601, end: 20080601

REACTIONS (3)
  - DYSPNOEA [None]
  - LUNG NEOPLASM [None]
  - PULMONARY EMBOLISM [None]
